FAERS Safety Report 8487450-1 (Version None)
Quarter: 2012Q2

REPORT INFORMATION
  Report Type: 
  Country: None (occurrence: None)
  Receive Date: 20120606
  Receipt Date: 20120529
  Transmission Date: 20120825
  Serious: Yes (Hospitalization)
  Sender: FDA-Public Use
  Company Number: 2011030462

PATIENT
  Sex: Female
  Weight: 71.6683 kg

DRUGS (31)
  1. MULTIVITAMIN (DAILY MULTIVITAMIN) [Concomitant]
  2. NAPROXEN [Concomitant]
  3. OMEPRAZOLE [Concomitant]
  4. MIRALAX [Concomitant]
  5. FAMOTIDINE [Concomitant]
  6. ACETAMINOPHEN [Concomitant]
  7. DIPHENHYDRAMINE HCL [Concomitant]
  8. BENADRYL [Concomitant]
  9. PRIVIGEN [Suspect]
  10. IBUPROFEN [Concomitant]
  11. VYVANSE (ALL OTHER THERAPEUTIC PRODUCTS) [Concomitant]
  12. HEPARIN [Concomitant]
  13. PRIVIGEN [Suspect]
     Indication: OPTIC NEURITIS
     Dosage: SEE IMAGE
     Route: 042
     Dates: start: 20111102, end: 20111104
  14. PRIVIGEN [Suspect]
     Indication: OPTIC NEURITIS
     Dosage: SEE IMAGE
     Route: 042
     Dates: start: 20120506, end: 20120506
  15. PRIVIGEN [Suspect]
     Indication: OPTIC NEURITIS
     Dosage: SEE IMAGE
     Route: 042
     Dates: start: 20110122
  16. PRIVIGEN [Suspect]
     Indication: OPTIC NEURITIS
     Dosage: SEE IMAGE
     Route: 042
     Dates: start: 20120506, end: 20120506
  17. PRIVIGEN [Suspect]
     Indication: OPTIC NEURITIS
     Dosage: SEE IMAGE
     Route: 042
     Dates: start: 20120506, end: 20120506
  18. PRIVIGEN [Suspect]
     Indication: OPTIC NEURITIS
     Dosage: SEE IMAGE
     Route: 042
     Dates: start: 20120506, end: 20120506
  19. PRIVIGEN [Suspect]
     Indication: OPTIC NEURITIS
     Dosage: SEE IMAGE
     Route: 042
     Dates: start: 20111102, end: 20111104
  20. PRIVIGEN [Suspect]
  21. PRIVIGEN [Suspect]
  22. FROVA [Suspect]
     Indication: MIGRAINE
  23. VITAMIN D [Concomitant]
  24. SODIUM CHLORIDE 0.9% [Concomitant]
  25. PRIVIGEN [Suspect]
  26. PEPCID [Concomitant]
  27. ZONEGRAN [Concomitant]
  28. EPINEPHRINE [Concomitant]
  29. PRIVIGEN [Suspect]
  30. MAXALT [Concomitant]
  31. FROVA [Concomitant]

REACTIONS (8)
  - MIGRAINE [None]
  - HEADACHE [None]
  - ASTHENIA [None]
  - INFUSION RELATED REACTION [None]
  - EYE IRRITATION [None]
  - EYE PAIN [None]
  - VISUAL FIELD DEFECT [None]
  - GAIT DISTURBANCE [None]
